FAERS Safety Report 22165929 (Version 1)
Quarter: 2023Q2

REPORT INFORMATION
  Report Type: Report from Study
  Country: GB (occurrence: None)
  Receive Date: 20230403
  Receipt Date: 20230403
  Transmission Date: 20230721
  Serious: Yes (Death)
  Sender: FDA-Public Use
  Company Number: GB-ROCHE-3318718

PATIENT
  Age: 56 Year
  Sex: Male

DRUGS (1)
  1. TOCILIZUMAB [Suspect]
     Active Substance: TOCILIZUMAB
     Indication: B-cell lymphoma recurrent
     Dosage: ON 21/SEP/2020, RECEIVED LAST DOSE OF TOCILIZUMAB
     Route: 065
     Dates: start: 20200907

REACTIONS (1)
  - Cytokine release syndrome [Fatal]
